FAERS Safety Report 5027964-X (Version None)
Quarter: 2006Q2

REPORT INFORMATION
  Report Type: 
  Country: None (occurrence: None)
  Receive Date: 20060612
  Receipt Date: 20060524
  Transmission Date: 20061013
  Serious: Yes (Hospitalization)
  Sender: FDA-Public Use
  Company Number: DE-2006-002947

PATIENT
  Age: 35 Year
  Sex: Female

DRUGS (1)
  1. BETASERON [Suspect]
     Indication: RELAPSING-REMITTING MULTIPLE SCLEROSIS
     Dosage: 8000 MIU, SUBCUTANEOUS
     Route: 058
     Dates: start: 20050218, end: 20060220

REACTIONS (9)
  - IMPAIRED HEALING [None]
  - INFLAMMATION OF WOUND [None]
  - INJECTION SITE ABSCESS [None]
  - INJECTION SITE DISCOLOURATION [None]
  - INJECTION SITE INFLAMMATION [None]
  - INJECTION SITE NECROSIS [None]
  - INJECTION SITE PAIN [None]
  - PERIVASCULAR DERMATITIS [None]
  - SEPTAL PANNICULITIS [None]
